FAERS Safety Report 10092934 (Version 1)
Quarter: 2014Q2

REPORT INFORMATION
  Report Type: Spontaneous
  Country: US (occurrence: US)
  Receive Date: 20140421
  Receipt Date: 20140421
  Transmission Date: 20141212
  Serious: No
  Sender: FDA-Public Use
  Company Number: US-SA-2013SA111307

PATIENT
  Age: 18 Year
  Sex: Female
  Weight: 54.43 kg

DRUGS (1)
  1. ALLEGRA 24 HOUR [Suspect]
     Indication: MULTIPLE ALLERGIES
     Route: 065
     Dates: start: 201310, end: 20131029

REACTIONS (2)
  - Nodule [Not Recovered/Not Resolved]
  - Rash [Recovered/Resolved]
